FAERS Safety Report 6743884-4 (Version None)
Quarter: 2010Q2

REPORT INFORMATION
  Report Type: 
  Country: None (occurrence: None)
  Receive Date: 20100527
  Receipt Date: 20100413
  Transmission Date: 20101027
  Serious: Yes (Other)
  Sender: FDA-Public Use
  Company Number: US-KINGPHARMUSA00001-K201000438

PATIENT
  Age: 52 Year
  Sex: Female
  Weight: 68.027 kg

DRUGS (9)
  1. FLECTOR [Suspect]
     Indication: PAIN
     Dosage: 1 PATCH, Q 12 HOURS
     Route: 061
     Dates: start: 20091101
  2. FLECTOR [Suspect]
     Dosage: 2 PATCH, Q 12 HOURS
     Route: 061
     Dates: end: 20100401
  3. LIDODERM [Concomitant]
     Dosage: 1 PATCH, UNK
  4. TORADOL [Concomitant]
     Dosage: 4-5 INJECTIONS, QMONTH
  5. NAPROSYN [Concomitant]
     Route: 048
  6. VOLTAREN [Concomitant]
     Route: 061
  7. VALIUM [Concomitant]
  8. OXYCONTIN [Concomitant]
  9. OXYCODONE [Concomitant]

REACTIONS (12)
  - BURNING SENSATION [None]
  - DIARRHOEA [None]
  - ERYTHEMA [None]
  - HAEMATEMESIS [None]
  - NAUSEA [None]
  - OEDEMA PERIPHERAL [None]
  - PRURITUS GENERALISED [None]
  - RASH [None]
  - ROAD TRAFFIC ACCIDENT [None]
  - WEIGHT INCREASED [None]
  - WHIPLASH INJURY [None]
  - WITHDRAWAL SYNDROME [None]
